FAERS Safety Report 17565784 (Version 1)
Quarter: 2020Q1

REPORT INFORMATION
  Report Type: Spontaneous
  Country: FR (occurrence: FR)
  Receive Date: 20200320
  Receipt Date: 20200320
  Transmission Date: 20200409
  Serious: Yes (Hospitalization)
  Sender: FDA-Public Use
  Company Number: FR-PFIZER INC-2020116056

PATIENT
  Age: 78 Year
  Sex: Male
  Weight: 75 kg

DRUGS (6)
  1. XATRAL [Concomitant]
     Active Substance: ALFUZOSIN
     Dosage: UNK
  2. VENLAFAXINE HCL [Suspect]
     Active Substance: VENLAFAXINE HYDROCHLORIDE
     Indication: MAJOR DEPRESSION
     Dosage: 75 MG, 1X/DAY
     Route: 048
     Dates: end: 20180315
  3. TEMERITDUO [Concomitant]
     Active Substance: HYDROCHLOROTHIAZIDE\NEBIVOLOL HYDROCHLORIDE
     Dosage: STRENGTH: 5 MG/12.5 MG
  4. BROMAZEPAM [Suspect]
     Active Substance: BROMAZEPAM
     Indication: MAJOR DEPRESSION
     Dosage: 4.5 MG, 1X/DAY
     Route: 048
     Dates: end: 20180315
  5. RISPERDAL [Suspect]
     Active Substance: RISPERIDONE
     Indication: CONFUSIONAL STATE
     Dosage: 3 MG, DAILY
     Route: 048
  6. THERALENE [Suspect]
     Active Substance: TRIMEPRAZINE
     Indication: MAJOR DEPRESSION
     Dosage: 20 GTT, 1X/DAY
     Route: 048
     Dates: end: 20180315

REACTIONS (1)
  - Behaviour disorder [Recovered/Resolved]

NARRATIVE: CASE EVENT DATE: 20180314
